FAERS Safety Report 6488336-4 (Version None)
Quarter: 2009Q4

REPORT INFORMATION
  Report Type: 
  Country: None (occurrence: None)
  Receive Date: 20091210
  Receipt Date: 20091126
  Transmission Date: 20100525
  Serious: Yes (Other)
  Sender: FDA-Public Use
  Company Number: GB-MYLANLABS-2008S1001087

PATIENT
  Age: 32 Year
  Sex: Female

DRUGS (5)
  1. VERAPAMIL [Suspect]
     Indication: CLUSTER HEADACHE
     Route: 048
  2. SUMATRIPTAN [Concomitant]
     Indication: DRUG USE FOR UNKNOWN INDICATION
     Route: 058
  3. LITHIUM [Concomitant]
     Indication: DRUG USE FOR UNKNOWN INDICATION
  4. VALPROATE SODIUM [Concomitant]
     Indication: DRUG USE FOR UNKNOWN INDICATION
  5. TOPIRAMATE [Concomitant]
     Indication: DRUG USE FOR UNKNOWN INDICATION

REACTIONS (7)
  - CONSTIPATION [None]
  - DENTAL DISCOMFORT [None]
  - GINGIVAL BLEEDING [None]
  - GINGIVAL HYPERPLASIA [None]
  - LETHARGY [None]
  - LOOSE TOOTH [None]
  - OEDEMA PERIPHERAL [None]
